FAERS Safety Report 15897952 (Version 1)
Quarter: 2019Q1

REPORT INFORMATION
  Report Type: Report from Study
  Country: PL (occurrence: PL)
  Receive Date: 20190201
  Receipt Date: 20190201
  Transmission Date: 20190417
  Serious: Yes (Other)
  Sender: FDA-Public Use
  Company Number: PL-ROCHE-2253361

PATIENT
  Age: 67 Year
  Sex: Female

DRUGS (2)
  1. WARFIN [Concomitant]
     Active Substance: WARFARIN
     Indication: VENOUS THROMBOSIS
  2. ROACTEMRA [Suspect]
     Active Substance: TOCILIZUMAB
     Indication: RHEUMATOID ARTHRITIS
     Route: 058
     Dates: start: 20180904, end: 201812

REACTIONS (2)
  - Soft tissue infection [Unknown]
  - Deep vein thrombosis [Unknown]

NARRATIVE: CASE EVENT DATE: 20190111
